FAERS Safety Report 11162286 (Version 1)
Quarter: 2015Q2

REPORT INFORMATION
  Report Type: Spontaneous
  Country: US (occurrence: None)
  Receive Date: 20150603
  Receipt Date: 20150603
  Transmission Date: 20150821
  Serious: Yes (Disabling)
  Sender: FDA-Public Use
  Company Number: None

PATIENT
  Age: 74 Year
  Sex: Male
  Weight: 78.02 kg

DRUGS (10)
  1. DOXYCYCLINE. [Suspect]
     Active Substance: DOXYCYCLINE
     Indication: NASOPHARYNGITIS
     Route: 048
     Dates: start: 20150330, end: 20150510
  2. AMLODIPINE [Concomitant]
     Active Substance: AMLODIPINE BESYLATE
  3. ASPIRIN. [Concomitant]
     Active Substance: ASPIRIN
  4. VITAMIN B [Concomitant]
     Active Substance: VITAMIN B
  5. VIAGRA [Concomitant]
     Active Substance: SILDENAFIL CITRATE
  6. PANTOPRAZOLE [Concomitant]
     Active Substance: PANTOPRAZOLE SODIUM
  7. DOXYCYCLINE. [Suspect]
     Active Substance: DOXYCYCLINE
     Indication: INFLUENZA
     Route: 048
     Dates: start: 20150330, end: 20150510
  8. VITAMIN C [Concomitant]
     Active Substance: ASCORBIC ACID
  9. VESICARE [Concomitant]
     Active Substance: SOLIFENACIN SUCCINATE
  10. VITAMIN D [Concomitant]
     Active Substance: CHOLECALCIFEROL

REACTIONS (4)
  - Skin lesion [None]
  - Tendon pain [None]
  - Burning sensation [None]
  - Photosensitivity reaction [None]

NARRATIVE: CASE EVENT DATE: 20150325
